FAERS Safety Report 22660738 (Version 1)
Quarter: 2023Q2

REPORT INFORMATION
  Report Type: Spontaneous
  Country: US (occurrence: None)
  Receive Date: 20230630
  Receipt Date: 20230630
  Transmission Date: 20230722
  Serious: Yes (Life-Threatening, Hospitalization)
  Sender: FDA-Public Use
  Company Number: None

PATIENT
  Age: 57 Year
  Sex: Male
  Weight: 125 kg

DRUGS (1)
  1. VANCOMYCIN [Suspect]
     Active Substance: VANCOMYCIN
     Indication: Cellulitis
     Route: 042

REACTIONS (4)
  - Drug hypersensitivity [None]
  - Angioedema [None]
  - Circulatory collapse [None]
  - Cardiac arrest [None]

NARRATIVE: CASE EVENT DATE: 20230620
